FAERS Safety Report 4507470-9 (Version None)
Quarter: 2004Q4

REPORT INFORMATION
  Report Type: 
  Country: None (occurrence: None)
  Receive Date: 20041118
  Receipt Date: 20041102
  Transmission Date: 20050328
  Serious: Yes (Hospitalization)
  Sender: FDA-Public Use
  Company Number: 2004-BP-11099RO

PATIENT
  Age: 78 Year
  Sex: Female
  Weight: 59 kg

DRUGS (7)
  1. LEUCOVORIN CALCIUM [Suspect]
     Indication: COLON CANCER
     Dosage: 320 MG
     Dates: start: 20040818
  2. IRINOTECAN (IRINOTECAN) [Suspect]
     Indication: COLON CANCER
     Dosage: 200 MG
     Dates: start: 20040818
  3. FLUOROURACIL [Concomitant]
     Indication: COLON CANCER
     Dosage: 640 MG
     Dates: start: 20040818
  4. CLOPIDOGREL (CLOPIDOGREL) [Concomitant]
  5. SIMVASTATIN [Concomitant]
  6. SORBITOL (SORBITOL) [Concomitant]
  7. PANTOPRAZOLE (PANTOPRAZOLE) [Concomitant]

REACTIONS (5)
  - ABDOMINAL PAIN [None]
  - DYSPEPSIA [None]
  - DYSPNOEA EXERTIONAL [None]
  - FEBRILE NEUTROPENIA [None]
  - MUCOSAL INFLAMMATION [None]
